FAERS Safety Report 9088051 (Version 1)
Quarter: 2013Q1

REPORT INFORMATION
  Report Type: Spontaneous
  Country: FR (occurrence: FR)
  Receive Date: 20130201
  Receipt Date: 20130201
  Transmission Date: 20140127
  Serious: Yes (Hospitalization)
  Sender: FDA-Public Use
  Company Number: FR-SANOFI-AVENTIS-2013SA006704

PATIENT
  Age: 58 Year
  Sex: Female

DRUGS (2)
  1. HEPARINE CHOAY [Suspect]
     Indication: ANTICOAGULANT THERAPY
     Route: 042
     Dates: start: 20121214, end: 20121223
  2. PLAVIX [Suspect]
     Indication: PRODUCT USED FOR UNKNOWN INDICATION
     Route: 048
     Dates: start: 20121215, end: 20121216

REACTIONS (2)
  - Cardiac tamponade [Not Recovered/Not Resolved]
  - Bronchial haemorrhage [Not Recovered/Not Resolved]
